FAERS Safety Report 5585066-8 (Version None)
Quarter: 2008Q1

REPORT INFORMATION
  Report Type: 
  Country: None (occurrence: None)
  Receive Date: 20080104
  Receipt Date: 20080104
  Transmission Date: 20080703
  Serious: Yes (Hospitalization)
  Sender: FDA-Public Use
  Company Number: None

PATIENT
  Age: 88 Year
  Sex: Female

DRUGS (2)
  1. OXCARBAZEPINE [Suspect]
     Indication: CONVULSION
     Dosage: 300MG BID PO
     Route: 048
     Dates: start: 20070501, end: 20070506
  2. KEPPRA [Concomitant]

REACTIONS (2)
  - HYPONATRAEMIA [None]
  - LEUKOPENIA [None]
